FAERS Safety Report 7043047-1 (Version None)
Quarter: 2010Q4

REPORT INFORMATION
  Report Type: 
  Country: None (occurrence: None)
  Receive Date: 20101013
  Receipt Date: 20101005
  Transmission Date: 20110411
  Serious: Yes (Death, Other)
  Sender: FDA-Public Use
  Company Number: CH-MERCK-1010USA00544

PATIENT
  Age: 53 Year
  Sex: Female
  Weight: 82 kg

DRUGS (8)
  1. CANCIDAS [Suspect]
     Indication: PYREXIA
     Route: 042
     Dates: start: 20040118, end: 20040205
  2. CANCIDAS [Suspect]
     Route: 042
     Dates: start: 20040207, end: 20040212
  3. SANDIMMUNE [Suspect]
     Route: 065
     Dates: start: 20040119, end: 20040205
  4. SANDIMMUNE [Suspect]
     Route: 065
     Dates: start: 20040206
  5. MEROPENEM [Concomitant]
     Route: 042
     Dates: start: 20040201, end: 20040309
  6. SOLU-MEDROL [Concomitant]
     Route: 042
     Dates: start: 20040202, end: 20040309
  7. ENDOXAN [Concomitant]
     Route: 065
     Dates: start: 20040116, end: 20040122
  8. VANCOMYCIN [Concomitant]
     Route: 042
     Dates: start: 20040209, end: 20040217

REACTIONS (11)
  - ACUTE CORONARY SYNDROME [None]
  - ACUTE GRAFT VERSUS HOST DISEASE IN INTESTINE [None]
  - ACUTE GRAFT VERSUS HOST DISEASE IN LIVER [None]
  - ACUTE GRAFT VERSUS HOST DISEASE IN SKIN [None]
  - ALANINE AMINOTRANSFERASE INCREASED [None]
  - DEATH [None]
  - DISEASE PROGRESSION [None]
  - DRUG INTERACTION [None]
  - GASTROINTESTINAL HAEMORRHAGE [None]
  - HISTIOCYTOSIS HAEMATOPHAGIC [None]
  - RENAL FAILURE ACUTE [None]
